FAERS Safety Report 8899186 (Version 2)
Quarter: 2014Q1

REPORT INFORMATION
  Report Type: Spontaneous
  Country: AR (occurrence: AR)
  Receive Date: 20121109
  Receipt Date: 20140307
  Transmission Date: 20141002
  Serious: Yes (Other)
  Sender: FDA-Public Use
  Company Number: PHHY2012AR101883

PATIENT
  Sex: Female

DRUGS (2)
  1. ACETYLSALICYLIC ACID [Suspect]
  2. NSAID^S [Suspect]

REACTIONS (5)
  - Rhinitis allergic [Unknown]
  - Nasal polyps [Unknown]
  - Asthma [Unknown]
  - Drug hypersensitivity [Unknown]
  - Bronchospasm [Unknown]
